FAERS Safety Report 9707993 (Version 1)
Quarter: 2013Q4

REPORT INFORMATION
  Report Type: Spontaneous
  Country: US (occurrence: US)
  Receive Date: 20131125
  Receipt Date: 20131125
  Transmission Date: 20140711
  Serious: No
  Sender: FDA-Public Use
  Company Number: US-BAXTER-2013BAX046515

PATIENT
  Sex: Male
  Weight: 119 kg

DRUGS (5)
  1. DIANEAL LOW CALCIUM [Suspect]
     Indication: RENAL FAILURE CHRONIC
     Route: 033
     Dates: start: 201209
  2. DIANEAL LOW CALCIUM [Suspect]
     Indication: RENAL FAILURE CHRONIC
     Dosage: 3 BAGS
     Route: 033
     Dates: start: 201209
  3. DIANEAL LOW CALCIUM [Suspect]
     Indication: RENAL FAILURE CHRONIC
     Dosage: 2 BAGS
     Route: 033
     Dates: start: 201209
  4. DIANEAL LOW CALCIUM [Suspect]
     Route: 033
     Dates: start: 201310
  5. DIANEAL LOW CALCIUM [Suspect]
     Dosage: 2 BAGS
     Route: 033
     Dates: start: 201311

REACTIONS (2)
  - Blood pressure decreased [Recovered/Resolved]
  - Constipation [Recovered/Resolved]
